FAERS Safety Report 7368051-5 (Version None)
Quarter: 2011Q1

REPORT INFORMATION
  Report Type: 
  Country: None (occurrence: None)
  Receive Date: 20110323
  Receipt Date: 20110314
  Transmission Date: 20110831
  Serious: Yes (Death, Hospitalization)
  Sender: FDA-Public Use
  Company Number: FR-BIOGENIDEC-2010BI045194

PATIENT
  Age: 45 Year
  Sex: Female

DRUGS (3)
  1. VITAMIN B-12 [Concomitant]
     Indication: FATIGUE
  2. ANTIDEPRESSANT [Concomitant]
     Indication: DEPRESSION
     Dates: start: 20101201
  3. TYSABRI [Suspect]
     Indication: MULTIPLE SCLEROSIS
     Route: 042
     Dates: start: 20080401, end: 20101209

REACTIONS (6)
  - HYPERGLYCAEMIA [None]
  - GRAND MAL CONVULSION [None]
  - PYREXIA [None]
  - PROGRESSIVE MULTIFOCAL LEUKOENCEPHALOPATHY [None]
  - ACUTE PULMONARY OEDEMA [None]
  - CYTOLYTIC HEPATITIS [None]
